FAERS Safety Report 4388536-3 (Version None)
Quarter: 2004Q2

REPORT INFORMATION
  Report Type: 
  Country: None (occurrence: None)
  Receive Date: 20040625
  Receipt Date: 20040408
  Transmission Date: 20050107
  Serious: Yes (Other)
  Sender: FDA-Public Use
  Company Number: GB-JNJFOC-20040401553

PATIENT
  Age: 61 Year
  Sex: Female

DRUGS (2)
  1. RISPERDAL CONSTA [Suspect]
     Indication: SCHIZOPHRENIA
     Dosage: 25 MG, 1 IN 2 WEEK, INTRAMUSCULAR
     Route: 030
     Dates: start: 20040406, end: 20040406
  2. RISPERDAL [Concomitant]

REACTIONS (25)
  - ABASIA [None]
  - ABNORMAL BEHAVIOUR [None]
  - AGITATION [None]
  - APHAGIA [None]
  - APHASIA [None]
  - BLOOD CREATINE INCREASED [None]
  - BLOOD CREATINE PHOSPHOKINASE INCREASED [None]
  - BLOOD PRESSURE DIASTOLIC INCREASED [None]
  - BLOOD PRESSURE INCREASED [None]
  - CONFUSIONAL STATE [None]
  - DROOLING [None]
  - DRUG TOXICITY [None]
  - DYSARTHRIA [None]
  - DYSKINESIA [None]
  - EMOTIONAL DISTRESS [None]
  - FEELING ABNORMAL [None]
  - HOSTILITY [None]
  - HYPOTONIA [None]
  - INCOHERENT [None]
  - NEUTROPHIL COUNT INCREASED [None]
  - POST PROCEDURAL COMPLICATION [None]
  - POSTURE ABNORMAL [None]
  - PSYCHOTIC DISORDER [None]
  - REFUSAL OF TREATMENT BY PATIENT [None]
  - TREATMENT NONCOMPLIANCE [None]
